FAERS Safety Report 12217179 (Version 1)
Quarter: 2016Q1

REPORT INFORMATION
  Report Type: Spontaneous
  Country: DE (occurrence: DE)
  Receive Date: 20160329
  Receipt Date: 20160329
  Transmission Date: 20160526
  Serious: Yes (Other)
  Sender: FDA-Public Use
  Company Number: DE-SUN PHARMACEUTICAL INDUSTRIES LTD-2016RR-113917

PATIENT

DRUGS (1)
  1. CEFUROX BASICS 500 MG FILMTABLETTEN [Suspect]
     Active Substance: CEFUROXIME
     Indication: LUNG INFECTION
     Route: 048

REACTIONS (5)
  - Tremor [Unknown]
  - Nausea [Unknown]
  - Diarrhoea [Unknown]
  - Circulatory collapse [Unknown]
  - Retching [Unknown]

NARRATIVE: CASE EVENT DATE: 20160312
